FAERS Safety Report 22392962 (Version 1)
Quarter: 2023Q2

REPORT INFORMATION
  Report Type: Spontaneous
  Country: US (occurrence: None)
  Receive Date: 20230531
  Receipt Date: 20230531
  Transmission Date: 20230721
  Serious: Yes (Other)
  Sender: FDA-Public Use
  Company Number: None

PATIENT
  Age: 40 Year
  Sex: Female
  Weight: 81.9 kg

DRUGS (7)
  1. PHENTERMINE [Suspect]
     Active Substance: PHENTERMINE
     Indication: Weight decreased
     Route: 048
     Dates: start: 20210401, end: 20230524
  2. amlodipine 5 mg tablet (started one week prior) [Concomitant]
  3. FLUOXETINE [Concomitant]
     Active Substance: FLUOXETINE HYDROCHLORIDE
  4. metformin ER 500 mg tablet [Concomitant]
  5. norethindrone acetate 1 mg-ethinyl [Concomitant]
  6. estradiol 20 mcg tablet [Concomitant]
  7. VITAMIN B COMPLEX [Concomitant]
     Active Substance: CYANOCOBALAMIN\DEXPANTHENOL\NIACINAMIDE\PYRIDOXINE HYDROCHLORIDE\RIBOFLAVIN 5^-PHOSPHATE SODIUM\THIA

REACTIONS (3)
  - Loss of consciousness [None]
  - Seizure [None]
  - Blood pressure decreased [None]

NARRATIVE: CASE EVENT DATE: 20230527
